FAERS Safety Report 18252217 (Version 2)
Quarter: 2024Q3

REPORT INFORMATION
  Report Type: Spontaneous
  Country: US (occurrence: None)
  Receive Date: 20200910
  Receipt Date: 20240906
  Transmission Date: 20241017
  Serious: No
  Sender: DOMPE FARMACEUTICI
  Company Number: US-FARMAPROD-202005-0698

PATIENT
  Sex: Female
  Weight: 61.23 kg

DRUGS (23)
  1. OXERVATE [Suspect]
     Active Substance: CENEGERMIN-BKBJ
     Indication: Neurotrophic keratopathy
     Route: 047
     Dates: start: 20200505
  2. OXERVATE [Suspect]
     Active Substance: CENEGERMIN-BKBJ
     Route: 047
     Dates: start: 20210329, end: 20210524
  3. OXERVATE [Suspect]
     Active Substance: CENEGERMIN-BKBJ
     Route: 047
     Dates: start: 20230929
  4. OXERVATE [Suspect]
     Active Substance: CENEGERMIN-BKBJ
  5. BUPROPION [Concomitant]
     Active Substance: BUPROPION
  6. PREGABALIN [Concomitant]
     Active Substance: PREGABALIN
  7. ESZOPICLONE [Concomitant]
     Active Substance: ESZOPICLONE
  8. OZEMPIC [Concomitant]
     Active Substance: SEMAGLUTIDE
     Dosage: 0.25 - 0.5 PEN INJECTOR
  9. PANTOPRAZOLE SODIUM [Concomitant]
     Active Substance: PANTOPRAZOLE SODIUM
  10. MODAFINIL [Concomitant]
     Active Substance: MODAFINIL
  11. DULOXETINE HYDROCHLORIDE [Concomitant]
     Active Substance: DULOXETINE HYDROCHLORIDE
  12. METOPROLOL SUCCINATE [Concomitant]
     Active Substance: METOPROLOL SUCCINATE
     Dosage: 24H
  13. ROSUVASTATIN CALCIUM [Concomitant]
     Active Substance: ROSUVASTATIN CALCIUM
  14. TRESIBA [Concomitant]
     Active Substance: INSULIN DEGLUDEC
  15. HUMALOG KWIKPEN [Concomitant]
     Active Substance: INSULIN LISPRO
     Dosage: INSULIN PEN
  16. RAMIPRIL [Concomitant]
     Active Substance: RAMIPRIL
  17. LISINOPRIL [Concomitant]
     Active Substance: LISINOPRIL
  18. OXYCODONE HYDROCHLORIDE [Concomitant]
     Active Substance: OXYCODONE HYDROCHLORIDE
  19. INSULIN LISPRO [Concomitant]
     Active Substance: INSULIN LISPRO
  20. PRAMIPEXOLE DIHYDROCHLORIDE [Concomitant]
     Active Substance: PRAMIPEXOLE DIHYDROCHLORIDE
  21. OMEPRAZOLE [Concomitant]
     Active Substance: OMEPRAZOLE
  22. VALACYCLOVIR [Concomitant]
     Active Substance: VALACYCLOVIR HYDROCHLORIDE
  23. RAMIPRIL [Concomitant]
     Active Substance: RAMIPRIL

REACTIONS (7)
  - Skin burning sensation [Not Recovered/Not Resolved]
  - Erythema of eyelid [Unknown]
  - Eye pain [Unknown]
  - Eye irritation [Unknown]
  - Expired product administered [Not Recovered/Not Resolved]
  - Off label use [Unknown]
  - Ocular hyperaemia [Unknown]
